FAERS Safety Report 6907280-9 (Version None)
Quarter: 2010Q3

REPORT INFORMATION
  Report Type: 
  Country: None (occurrence: None)
  Receive Date: 20100730
  Receipt Date: 20100720
  Transmission Date: 20110219
  Serious: Yes (Other)
  Sender: FDA-Public Use
  Company Number: 015613

PATIENT
  Age: 25 Year
  Sex: Female
  Weight: 63.6 kg

DRUGS (6)
  1. LACOSAMIDE [Suspect]
     Indication: EPILEPSY
     Dosage: 100 MG BID, TITRATED DOSE, 150 MG BID ORAL
     Route: 048
     Dates: start: 20090701, end: 20090912
  2. VALPROIC ACID [Concomitant]
  3. KEPPRA [Concomitant]
  4. ZONEGRAN [Concomitant]
  5. ATIVAN [Concomitant]
  6. CO-ENZYME [Concomitant]

REACTIONS (3)
  - DIPLOPIA [None]
  - MYOCLONIC EPILEPSY [None]
  - VISION BLURRED [None]
